FAERS Safety Report 25476107 (Version 2)
Quarter: 2025Q3

REPORT INFORMATION
  Report Type: Spontaneous
  Country: EU (occurrence: EU)
  Receive Date: 20250625
  Receipt Date: 20250707
  Transmission Date: 20251021
  Serious: Yes (Hospitalization)
  Sender: TEVA
  Company Number: EU-TEVA-VS-3344078

PATIENT
  Sex: Male

DRUGS (10)
  1. OCTREOTIDE [Suspect]
     Active Substance: OCTREOTIDE
     Indication: Congenital hyperinsulinaemic hypoglycaemia
     Dosage: 20-40  G/KG/D
     Route: 058
  2. DASIGLUCAGON [Suspect]
     Active Substance: DASIGLUCAGON
     Indication: Congenital hyperinsulinaemic hypoglycaemia
     Dosage: 20-30  G/H PER DAY
     Route: 058
  3. DASIGLUCAGON [Suspect]
     Active Substance: DASIGLUCAGON
     Indication: Congenital hyperinsulinaemic hypoglycaemia
     Dosage: 40-60  G/H VIA INSULIN PUMP
     Route: 058
  4. DIAZOXIDE [Concomitant]
     Active Substance: DIAZOXIDE
     Indication: Congenital hyperinsulinaemic hypoglycaemia
     Route: 065
  5. DEXTROSE [Concomitant]
     Active Substance: DEXTROSE MONOHYDRATE
     Indication: Congenital hyperinsulinaemic hypoglycaemia
     Dosage: 10 G/KG
     Route: 065
  6. DEXTROSE [Concomitant]
     Active Substance: DEXTROSE MONOHYDRATE
     Indication: Congenital hyperinsulinaemic hypoglycaemia
     Route: 048
  7. DEXTROSE [Concomitant]
     Active Substance: DEXTROSE MONOHYDRATE
     Indication: Congenital hyperinsulinaemic hypoglycaemia
     Dosage: 35 G/KG
     Route: 042
  8. DEXTROSE [Concomitant]
     Active Substance: DEXTROSE MONOHYDRATE
     Indication: Congenital hyperinsulinaemic hypoglycaemia
     Route: 042
  9. DEXTROSE [Concomitant]
     Active Substance: DEXTROSE MONOHYDRATE
     Indication: Congenital hyperinsulinaemic hypoglycaemia
     Route: 048
  10. GLUCAGON [Suspect]
     Active Substance: GLUCAGON
     Indication: Congenital hyperinsulinaemic hypoglycaemia
     Route: 050

REACTIONS (8)
  - Metabolic acidosis [Unknown]
  - Device related sepsis [Unknown]
  - Amino acid level decreased [Unknown]
  - Necrolytic migratory erythema [Recovered/Resolved]
  - Malnutrition [Unknown]
  - Staphylococcal infection [Unknown]
  - Drug ineffective [Unknown]
  - Zinc deficiency [Unknown]
